FAERS Safety Report 4896815-6 (Version None)
Quarter: 2006Q1

REPORT INFORMATION
  Report Type: 
  Country: None (occurrence: None)
  Receive Date: 20060126
  Receipt Date: 20060110
  Transmission Date: 20060701
  Serious: Yes (Hospitalization)
  Sender: FDA-Public Use
  Company Number: 221212

PATIENT
  Age: 69 Year
  Sex: Male
  Weight: 63 kg

DRUGS (11)
  1. HERCEPTIN [Suspect]
     Indication: GASTRIC CANCER
     Dosage: 420 MG, INTRAVENOUS
     Route: 042
     Dates: start: 20051117, end: 20051228
  2. XELODA (XELODA) [Suspect]
     Indication: GASTRIC CANCER
     Dosage: 3600 MG, BID, ORAL
     Route: 048
     Dates: start: 20051208, end: 20051228
  3. CISPLATIN [Suspect]
     Indication: GASTRIC CANCER
     Dosage: 140 MG, Q3W, INTRAVENOUS
     Route: 042
     Dates: start: 20051117
  4. METOCLOPRAMIDE (METOCLOPRAMIDE HYDROCHLORIDE) [Concomitant]
  5. DEXAMETHASONE [Concomitant]
  6. ONDANSETRON [Concomitant]
  7. ESOMEPRAZOLE (ESOMEPRAZOLE MAGNESIUM) [Concomitant]
  8. GLYBURIDE [Concomitant]
  9. APREPITANT (APREPITANT) [Concomitant]
  10. OXYCONTIN [Concomitant]
  11. OXYCODONE HCL [Concomitant]

REACTIONS (3)
  - FEMORAL ARTERY OCCLUSION [None]
  - MUCOSAL INFLAMMATION [None]
  - ORAL CANDIDIASIS [None]
